FAERS Safety Report 25046298 (Version 1)
Quarter: 2025Q1

REPORT INFORMATION
  Report Type: Report from Study
  Country: CA (occurrence: CA)
  Receive Date: 20250306
  Receipt Date: 20250306
  Transmission Date: 20250408
  Serious: Yes (Other)
  Sender: ABBVIE
  Company Number: CA-ABBVIE-6158984

PATIENT
  Age: 50 Year
  Sex: Male

DRUGS (2)
  1. RINVOQ [Suspect]
     Active Substance: UPADACITINIB
     Indication: Crohn^s disease
     Dosage: FOR 12 WEEKS
     Route: 048
     Dates: start: 20241219, end: 20250210
  2. RINVOQ [Suspect]
     Active Substance: UPADACITINIB
     Indication: Crohn^s disease
     Dosage: WITH OR WITHOUT FOOD ,DO NOT CHEW, SPLIT, OR CRUSH,?LAST ADMIN DATE: FEB 2025
     Route: 048
     Dates: start: 20250212

REACTIONS (2)
  - Gastrointestinal procedural complication [Unknown]
  - Crohn^s disease [Unknown]

NARRATIVE: CASE EVENT DATE: 20250201
